FAERS Safety Report 10351290 (Version 6)
Quarter: 2015Q2

REPORT INFORMATION
  Report Type: Spontaneous
  Country: US (occurrence: US)
  Receive Date: 20140730
  Receipt Date: 20150611
  Transmission Date: 20150821
  Serious: Yes (Hospitalization, Other)
  Sender: FDA-Public Use
  Company Number: US-GLAXOSMITHKLINE-A1083092A

PATIENT
  Age: 53 Year
  Sex: Female

DRUGS (4)
  1. REVATIO [Concomitant]
     Active Substance: SILDENAFIL CITRATE
  2. FLOLAN [Suspect]
     Active Substance: EPOPROSTENOL SODIUM
     Indication: PULMONARY ARTERIAL HYPERTENSION
     Dosage: 32.63 NG/KG/MIN
     Route: 042
     Dates: start: 20021109
  3. FLOLAN [Suspect]
     Active Substance: EPOPROSTENOL SODIUM
     Dosage: VIAL STRENGTH 1.5 MG/1ML
  4. FLOLAN [Suspect]
     Active Substance: EPOPROSTENOL SODIUM
     Dosage: 33 NG/KG/MIN, CO
     Route: 042

REACTIONS (10)
  - Asthenia [Unknown]
  - Device alarm issue [Not Recovered/Not Resolved]
  - Hypotension [Unknown]
  - Arthralgia [Unknown]
  - Medical device complication [Unknown]
  - Pelvic pain [Unknown]
  - Blood pressure abnormal [Unknown]
  - Hospitalisation [Unknown]
  - Dizziness [Unknown]
  - Haemorrhage [Unknown]

NARRATIVE: CASE EVENT DATE: 20150207
